FAERS Safety Report 23570786 (Version 1)
Quarter: 2024Q1

REPORT INFORMATION
  Report Type: Spontaneous
  Country: US (occurrence: US)
  Receive Date: 20240227
  Receipt Date: 20240227
  Transmission Date: 20240409
  Serious: No
  Sender: FDA-Public Use
  Company Number: US-BAXTER-2024BAX013173

PATIENT

DRUGS (2)
  1. MESNA [Suspect]
     Active Substance: MESNA
     Dosage: UNK, INFUSION
     Route: 065
  2. SMOFLIPID [Suspect]
     Active Substance: FISH OIL\MEDIUM-CHAIN TRIGLYCERIDES\OLIVE OIL\SOYBEAN OIL
     Dosage: UNK, INFUSION
     Route: 065

REACTIONS (1)
  - Infusion site extravasation [Unknown]
